FAERS Safety Report 7768997-X (Version None)
Quarter: 2011Q3

REPORT INFORMATION
  Report Type: 
  Country: None (occurrence: None)
  Receive Date: 20110922
  Receipt Date: 20101209
  Transmission Date: 20111222
  Serious: No
  Sender: FDA-Public Use
  Company Number: US-ASTRAZENECA-2010SE58473

PATIENT
  Age: 44 Year
  Sex: Female
  Weight: 49.9 kg

DRUGS (18)
  1. SEROQUEL [Suspect]
     Dosage: 200 MGS MID EVENING
     Route: 048
     Dates: start: 20101101
  2. SEROQUEL [Suspect]
     Route: 048
     Dates: start: 20090101
  3. SEROQUEL [Suspect]
     Route: 048
     Dates: start: 20101101
  4. CLONAZEPAM [Concomitant]
     Indication: BIPOLAR DISORDER
  5. HYDROXYZINEPAM [Concomitant]
     Indication: PRURITUS
  6. SEROQUEL [Suspect]
     Route: 048
     Dates: start: 20101101
  7. SEROQUEL [Suspect]
     Dosage: 200 MGS MID EVENING
     Route: 048
     Dates: start: 20101101
  8. VENTOLIN HFA [Concomitant]
     Indication: ASTHMA
     Route: 055
  9. SEROQUEL [Suspect]
     Route: 048
     Dates: start: 20101101
  10. SEROQUEL [Suspect]
     Indication: BIPOLAR DISORDER
     Route: 048
     Dates: start: 20090101
  11. SEROQUEL [Suspect]
     Indication: ATTENTION DEFICIT/HYPERACTIVITY DISORDER
     Route: 048
     Dates: start: 20090101
  12. SEROQUEL [Suspect]
     Route: 048
     Dates: start: 20090101
  13. PRISTIQ [Concomitant]
     Indication: BIPOLAR DISORDER
  14. SEROQUEL [Suspect]
     Dosage: 200 MGS MID EVENING
     Route: 048
     Dates: start: 20090101
  15. SEROQUEL [Suspect]
     Route: 048
     Dates: start: 20090101
  16. SEROQUEL [Suspect]
     Route: 048
     Dates: start: 20090101
  17. SEROQUEL [Suspect]
     Dosage: 200 MGS MID EVENING
     Route: 048
     Dates: start: 20090101
  18. SEROQUEL [Suspect]
     Route: 048
     Dates: start: 20101101

REACTIONS (4)
  - DRUG DOSE OMISSION [None]
  - IMPAIRED DRIVING ABILITY [None]
  - INSOMNIA [None]
  - SOMNOLENCE [None]
